FAERS Safety Report 16959328 (Version 2)
Quarter: 2019Q4

REPORT INFORMATION
  Report Type: Report from Study
  Country: None (occurrence: CA)
  Receive Date: 20191025
  Receipt Date: 20191202
  Transmission Date: 20200122
  Serious: Yes (Hospitalization, Other)
  Sender: FDA-Public Use
  Company Number: CA-ABBVIE-19K-028-2974357-00

PATIENT
  Age: 54 Year
  Sex: Male

DRUGS (1)
  1. HUMIRA [Suspect]
     Active Substance: ADALIMUMAB
     Indication: PSORIASIS
     Route: 058
     Dates: start: 20180528

REACTIONS (7)
  - Substance abuse [Unknown]
  - Nausea [Unknown]
  - Liver injury [Not Recovered/Not Resolved]
  - Alcoholism [Not Recovered/Not Resolved]
  - Haematemesis [Unknown]
  - Oesophageal infection [Unknown]
  - Asthenia [Unknown]

NARRATIVE: CASE EVENT DATE: 201910
